FAERS Safety Report 15499152 (Version 1)
Quarter: 2018Q4

REPORT INFORMATION
  Report Type: Spontaneous
  Country: US (occurrence: US)
  Receive Date: 20181006
  Receipt Date: 20181006
  Transmission Date: 20190205
  Serious: No
  Sender: FDA-Public Use
  Company Number: None

PATIENT
  Age: 23 Year
  Sex: Female
  Weight: 51.3 kg

DRUGS (1)
  1. NEXPLANON [Suspect]
     Active Substance: ETONOGESTREL
     Indication: CONTRACEPTION
     Dosage: ?          QUANTITY:1 IMPLANT;OTHER FREQUENCY:3 YEARS;?
     Route: 058
     Dates: start: 20180629, end: 20181004

REACTIONS (2)
  - Implant site vesicles [None]
  - Procedural complication [None]

NARRATIVE: CASE EVENT DATE: 20181005
